FAERS Safety Report 16839068 (Version 1)
Quarter: 2019Q4

REPORT INFORMATION
  Report Type: Spontaneous
  Country: US (occurrence: US)
  Receive Date: 20190920
  Receipt Date: 20190920
  Transmission Date: 20200122
  Serious: No
  Sender: FDA-Public Use
  Company Number: None

PATIENT
  Age: 39 Year
  Sex: Male

DRUGS (1)
  1. LOSARTAN. [Suspect]
     Active Substance: LOSARTAN
     Route: 048
     Dates: start: 20190917, end: 20190920

REACTIONS (4)
  - Chills [None]
  - Headache [None]
  - Cold sweat [None]
  - Product quality issue [None]

NARRATIVE: CASE EVENT DATE: 20190916
